FAERS Safety Report 6302410-4 (Version None)
Quarter: 2009Q3

REPORT INFORMATION
  Report Type: 
  Country: None (occurrence: None)
  Receive Date: 20090810
  Receipt Date: 20090728
  Transmission Date: 20100115
  Serious: Yes (Hospitalization)
  Sender: FDA-Public Use
  Company Number: BE-ELI_LILLY_AND_COMPANY-BE200907000799

PATIENT
  Sex: Male
  Weight: 43.3 kg

DRUGS (7)
  1. PEMETREXED [Suspect]
     Indication: HEAD AND NECK CANCER
     Dosage: 765 MG, EVERY 21 DAYS
     Route: 042
     Dates: start: 20090312
  2. CISPLATIN [Suspect]
     Indication: HEAD AND NECK CANCER
     Dosage: 115 MG, EVERY 21 DAYS
     Route: 042
     Dates: start: 20090312
  3. FOLIC ACID [Concomitant]
     Indication: SUPPLEMENTATION THERAPY
     Dosage: 0.4 MG, DAILY (1/D)
     Route: 048
     Dates: start: 20090305
  4. VITAMIN B-12 [Concomitant]
     Indication: PROPHYLAXIS
     Dosage: UNK, UNK
     Route: 030
     Dates: start: 20090305, end: 20090703
  5. DEXAMETHASONE [Concomitant]
     Indication: PROPHYLAXIS
     Dosage: 4 MG, 2/D
     Route: 048
     Dates: start: 20090430
  6. CORSODYL [Concomitant]
     Indication: PROPHYLAXIS
     Dates: start: 20090312
  7. PANTOZOL [Concomitant]
     Dates: start: 20050101

REACTIONS (3)
  - GENERAL PHYSICAL HEALTH DETERIORATION [None]
  - RENAL FAILURE [None]
  - RENAL IMPAIRMENT [None]
